FAERS Safety Report 6042630-X (Version None)
Quarter: 2009Q1

REPORT INFORMATION
  Report Type: 
  Country: None (occurrence: None)
  Receive Date: 20090119
  Receipt Date: 20090109
  Transmission Date: 20090719
  Serious: Yes (Other)
  Sender: FDA-Public Use
  Company Number: PR-BAYER-200910694NA

PATIENT
  Age: 72 Year
  Sex: Male

DRUGS (1)
  1. NEXAVAR [Suspect]
     Indication: HEPATIC NEOPLASM MALIGNANT
     Dosage: TOTAL DAILY DOSE: 800 MG  UNIT DOSE: 200 MG
     Route: 048
     Dates: start: 20081217

REACTIONS (7)
  - ASTHENIA [None]
  - BLOOD PRESSURE ABNORMAL [None]
  - FALL [None]
  - FATIGUE [None]
  - HYPERSOMNIA [None]
  - SKIN WARM [None]
  - WEIGHT DECREASED [None]
